FAERS Safety Report 7809183-4 (Version None)
Quarter: 2011Q4

REPORT INFORMATION
  Report Type: 
  Country: None (occurrence: None)
  Receive Date: 20111012
  Receipt Date: 20111004
  Transmission Date: 20120403
  Serious: Yes (Death, Congenital Anomaly)
  Sender: FDA-Public Use
  Company Number: DK-UCBSA-8038330

PATIENT
  Sex: Male

DRUGS (3)
  1. FOLIC ACID [Concomitant]
     Indication: PROPHYLAXIS
     Route: 064
     Dates: end: 20080919
  2. KEPPRA [Suspect]
     Indication: EPILEPSY
     Route: 064
     Dates: start: 20080101, end: 20080919
  3. LAMOTRIGINE [Suspect]
     Indication: EPILEPSY
     Dosage: 200 MG - 100 MG DOSE FREQ.: DAILY
     Route: 064
     Dates: start: 20080101, end: 20080919

REACTIONS (8)
  - CAUDAL REGRESSION SYNDROME [None]
  - POTTER'S SYNDROME [None]
  - CONGENITAL PNEUMONIA [None]
  - RENAL APLASIA [None]
  - OLIGOHYDRAMNIOS [None]
  - MATERNAL EXPOSURE DURING PREGNANCY [None]
  - CONGENITAL GENITAL MALFORMATION [None]
  - VASCULAR ANOMALY [None]
